FAERS Safety Report 7486775-6 (Version None)
Quarter: 2011Q2

REPORT INFORMATION
  Report Type: 
  Country: None (occurrence: None)
  Receive Date: 20110517
  Receipt Date: 20100920
  Transmission Date: 20111010
  Serious: No
  Sender: FDA-Public Use
  Company Number: US-NOVEN-ALL1-2010-04411

PATIENT
  Sex: Male
  Weight: 62.585 kg

DRUGS (9)
  1. VITAMIN D [Concomitant]
     Dosage: 50000 IU, 1X/WEEK
     Route: 048
  2. DAYTRANA [Suspect]
     Dosage: 15 MG, 1X/DAY:QD
     Route: 062
     Dates: start: 20100817
  3. CREON [Concomitant]
     Dosage: UNK MG, WITH FOOD AND DRINK
     Route: 048
  4. CENTRUM KIDS [Concomitant]
     Dosage: UNK, 1X/DAY:QD
     Route: 048
  5. ABDEC [Concomitant]
     Dosage: UNK, 1X/DAY:QD
     Route: 048
  6. R-TANNAMINE [Concomitant]
     Dosage: UNK MG, 1X/DAY:QD
     Route: 048
     Dates: start: 20040101
  7. ACIPHEX [Concomitant]
     Dosage: 60 MG, 2X/DAY:BID
     Route: 048
  8. PULMOZYME [Concomitant]
     Dosage: 2.5 ML, EVERY OTHER DAY
     Route: 055
  9. XYLAVAGE [Concomitant]
     Dosage: UNK, 1X/DAY:QD
     Route: 045

REACTIONS (2)
  - SOMNOLENCE [None]
  - HYPERSOMNIA [None]
